FAERS Safety Report 6883660-5 (Version None)
Quarter: 2010Q3

REPORT INFORMATION
  Report Type: 
  Country: None (occurrence: None)
  Receive Date: 20100729
  Receipt Date: 20100716
  Transmission Date: 20110219
  Serious: Yes (Hospitalization)
  Sender: FDA-Public Use
  Company Number: A0832389A

PATIENT
  Age: 52 Year
  Sex: Male
  Weight: 105.5 kg

DRUGS (2)
  1. AVANDIA [Suspect]
     Indication: DIABETES MELLITUS
     Dosage: 8MG PER DAY
     Route: 048
     Dates: start: 20000502, end: 20060303
  2. AVANDAMET [Suspect]
     Route: 048
     Dates: start: 20041007, end: 20050101

REACTIONS (1)
  - MYOCARDIAL INFARCTION [None]
